FAERS Safety Report 15188952 (Version 2)
Quarter: 2018Q3

REPORT INFORMATION
  Report Type: Spontaneous
  Country: US (occurrence: US)
  Receive Date: 20180724
  Receipt Date: 20180724
  Transmission Date: 20181010
  Serious: No
  Sender: FDA-Public Use
  Company Number: US-BAYER-2018-135793

PATIENT
  Age: 48 Year
  Sex: Female

DRUGS (1)
  1. CLIMARA PRO [Suspect]
     Active Substance: ESTRADIOL\LEVONORGESTREL
     Dosage: UNK
     Route: 062
     Dates: start: 2018

REACTIONS (4)
  - Product adhesion issue [None]
  - Product physical issue [None]
  - Drug ineffective [None]
  - Medical device site discomfort [None]

NARRATIVE: CASE EVENT DATE: 2018
